FAERS Safety Report 5930681-2 (Version None)
Quarter: 2008Q4

REPORT INFORMATION
  Report Type: 
  Country: None (occurrence: None)
  Receive Date: 20081003
  Receipt Date: 20080731
  Transmission Date: 20090506
  Serious: Yes (Other)
  Sender: FDA-Public Use
  Company Number: 2005-05108

PATIENT
  Age: 58 Year
  Sex: Female
  Weight: 55 kg

DRUGS (1)
  1. TENUATE DOSPAN [Suspect]
     Indication: WEIGHT CONTROL
     Dosage: INCREASED TO 150 75 MG, DAILY X 3 MONTHS
     Dates: start: 19600101

REACTIONS (1)
  - PULMONARY HYPERTENSION [None]
